FAERS Safety Report 19109352 (Version 1)
Quarter: 2021Q2

REPORT INFORMATION
  Report Type: Spontaneous
  Country: DE (occurrence: DE)
  Receive Date: 20210408
  Receipt Date: 20210408
  Transmission Date: 20210717
  Serious: Yes (Hospitalization, Other)
  Sender: FDA-Public Use
  Company Number: NVSC2021DE074735

PATIENT
  Sex: Female
  Weight: 68 kg

DRUGS (7)
  1. IRBESARTAN ? 1A PHARMA [Suspect]
     Active Substance: IRBESARTAN
     Indication: PRODUCT USED FOR UNKNOWN INDICATION
     Dosage: 150 MG
     Route: 065
     Dates: start: 2017, end: 202004
  2. MOXONIDIN HEUMANN [Concomitant]
     Indication: PRODUCT USED FOR UNKNOWN INDICATION
     Dosage: 0.2 MG
     Route: 065
     Dates: start: 202103
  3. LERCANIDIPINE [Concomitant]
     Active Substance: LERCANIDIPINE
     Indication: PRODUCT USED FOR UNKNOWN INDICATION
     Dosage: 10 MG  (1X WEEK EVERY 10 DAYS)
     Route: 065
  4. IRBESARTAN ? 1A PHARMA [Suspect]
     Active Substance: IRBESARTAN
     Dosage: 300 MG
     Route: 065
     Dates: start: 202103
  5. IRBESARTAN ? 1A PHARMA [Suspect]
     Active Substance: IRBESARTAN
     Dosage: 150 MG, QD (1?0?0)
     Route: 065
     Dates: end: 202103
  6. FERRO?SANOL DUODENAL [Concomitant]
     Active Substance: FERROUS GLYCINE SULFATE
     Indication: PRODUCT USED FOR UNKNOWN INDICATION
     Dosage: UNK, QD (1?0?0)
     Route: 065
  7. ERYPO [Concomitant]
     Indication: PRODUCT USED FOR UNKNOWN INDICATION
     Dosage: 4 UNK (1X WEEK EVERY 10 DAYS)
     Route: 065

REACTIONS (11)
  - Acute kidney injury [Unknown]
  - Haematuria [Unknown]
  - Albuminuria [Unknown]
  - Haemolysis [Unknown]
  - Blood lactic acid decreased [Unknown]
  - Mean platelet volume decreased [Unknown]
  - Blood fibrinogen increased [Unknown]
  - C3 glomerulopathy [Not Recovered/Not Resolved]
  - Glomerular filtration rate decreased [Not Recovered/Not Resolved]
  - Lymphocyte count decreased [Unknown]
  - Oxygen saturation decreased [Unknown]

NARRATIVE: CASE EVENT DATE: 2020
